FAERS Safety Report 9096002 (Version 1)
Quarter: 2013Q1

REPORT INFORMATION
  Report Type: Report from Study
  Country: CA (occurrence: CA)
  Receive Date: 20130207
  Receipt Date: 20130207
  Transmission Date: 20140127
  Serious: Yes (Hospitalization, Other)
  Sender: FDA-Public Use
  Company Number: CA-JNJFOC-20130116361

PATIENT
  Age: 44 Year
  Sex: Female
  Weight: 96.6 kg

DRUGS (6)
  1. REMICADE [Suspect]
     Indication: COLITIS ULCERATIVE
     Route: 042
  2. ACETYLSALICYLIC ACID [Concomitant]
     Route: 065
  3. ASACOL [Concomitant]
     Route: 065
  4. CRESTOR [Concomitant]
     Route: 065
  5. EFFEXOR [Concomitant]
     Route: 065
  6. COVERSYL PLUS [Concomitant]
     Route: 065

REACTIONS (4)
  - Sinusitis [Recovered/Resolved]
  - Influenza [Recovering/Resolving]
  - Lower respiratory tract infection [Recovered/Resolved]
  - Chronic obstructive pulmonary disease [Recovering/Resolving]
